FAERS Safety Report 5030780-6 (Version None)
Quarter: 2006Q2

REPORT INFORMATION
  Report Type: 
  Country: None (occurrence: None)
  Receive Date: 20060621
  Receipt Date: 20060515
  Transmission Date: 20061013
  Serious: Yes (Other)
  Sender: FDA-Public Use
  Company Number: FR-ROCHE-448008

PATIENT

DRUGS (8)
  1. LOXEN [Suspect]
     Indication: PRE-ECLAMPSIA
  2. LEVOTHYROX [Concomitant]
  3. DANATROL [Concomitant]
  4. BERINERT HS [Concomitant]
  5. 1 CONCOMITANT DRUG [Concomitant]
     Dosage: REPORTED AS HYPERBARIC UNKNOWN
  6. BUPIVACAINE [Concomitant]
  7. SUFENTANIL CITRATE [Concomitant]
  8. TRANDATE [Concomitant]

REACTIONS (3)
  - CAESAREAN SECTION [None]
  - DRUG EXPOSURE DURING PREGNANCY [None]
  - FOETAL ARRHYTHMIA [None]
